FAERS Safety Report 6447322-0 (Version None)
Quarter: 2009Q4

REPORT INFORMATION
  Report Type: 
  Country: None (occurrence: None)
  Receive Date: 20091119
  Receipt Date: 20091118
  Transmission Date: 20100525
  Serious: Yes (Other)
  Sender: FDA-Public Use
  Company Number: CHPA2009US22060

PATIENT
  Age: 75 Year
  Sex: Female

DRUGS (2)
  1. BUCKLEY'S CHEST CONGESTION [Suspect]
     Indication: PULMONARY CONGESTION
     Dosage: UNK, UNK
     Route: 048
     Dates: start: 20091112, end: 20091112
  2. GINGKOMIN [Suspect]
     Indication: ENERGY INCREASED

REACTIONS (1)
  - BLOOD PRESSURE INCREASED [None]
